FAERS Safety Report 6745092-X (Version None)
Quarter: 2010Q2

REPORT INFORMATION
  Report Type: 
  Country: None (occurrence: None)
  Receive Date: 20100527
  Receipt Date: 20100519
  Transmission Date: 20101027
  Serious: Yes (Hospitalization)
  Sender: FDA-Public Use
  Company Number: US-AMGEN-KDL402793

PATIENT
  Sex: Male

DRUGS (3)
  1. ENBREL [Suspect]
     Indication: RHEUMATOID ARTHRITIS
     Route: 058
     Dates: start: 20100219
  2. ARAVA [Concomitant]
     Route: 048
  3. OXYGEN [Concomitant]

REACTIONS (5)
  - CARDIOMEGALY [None]
  - DRUG INEFFECTIVE [None]
  - HEADACHE [None]
  - MUSCULOSKELETAL PAIN [None]
  - RIGHT VENTRICULAR FAILURE [None]
